FAERS Safety Report 19833104 (Version 1)
Quarter: 2021Q3

REPORT INFORMATION
  Report Type: Spontaneous
  Country: US (occurrence: US)
  Receive Date: 20210915
  Receipt Date: 20210915
  Transmission Date: 20211014
  Serious: Yes (Other)
  Sender: FDA-Public Use
  Company Number: US-JNJFOC-20210905646

PATIENT
  Age: 7 Decade
  Sex: Male

DRUGS (1)
  1. NEUTROGENA BEACH DEFENSE WATER PLUS SUN PROTECTION SUNSCREEN BROAD SPECTRUM SPF 60 PLUS [Suspect]
     Active Substance: AVOBENZONE\HOMOSALATE\OCTISALATE\OCTOCRYLENE
     Indication: PROPHYLAXIS AGAINST SOLAR RADIATION
     Dosage: THERAPY STATED 4 TO 5 YEARS; FAIR AMOUNT TO COVER THE AREAS FROM FACE,  NECK ARM AND LEGS TWICE EVER
     Route: 061

REACTIONS (1)
  - Skin cancer [Recovered/Resolved]
